FAERS Safety Report 4363497-1 (Version None)
Quarter: 2004Q2

REPORT INFORMATION
  Report Type: 
  Country: None (occurrence: None)
  Receive Date: 20040517
  Receipt Date: 20040401
  Transmission Date: 20050107
  Serious: No
  Sender: FDA-Public Use
  Company Number: S04-USA-01959-01

PATIENT
  Sex: Male

DRUGS (13)
  1. NAMENDA [Suspect]
     Indication: DEMENTIA ALZHEIMER'S TYPE
     Dosage: 5 MG QD PO
     Route: 048
     Dates: start: 20040101, end: 20040101
  2. NAMENDA [Suspect]
     Indication: DEMENTIA ALZHEIMER'S TYPE
     Dosage: 10 MG QD PO
     Route: 048
     Dates: start: 20040101, end: 20040101
  3. NAMENDA [Suspect]
     Indication: DEMENTIA ALZHEIMER'S TYPE
     Dosage: 15 MG QD PO
     Route: 048
     Dates: start: 20040101, end: 20040101
  4. NAMENDA [Suspect]
     Indication: DEMENTIA ALZHEIMER'S TYPE
     Dosage: 10 MG BID PO
     Route: 048
     Dates: start: 20040101
  5. ARICEPT [Concomitant]
  6. COUMADIN [Concomitant]
  7. TERAZOL (TERCONAZOLE) [Concomitant]
  8. QUININE [Concomitant]
  9. RISPERIDONE [Concomitant]
  10. GEMFIBROZIL [Concomitant]
  11. NAPROXEN [Concomitant]
  12. ASPIRIN [Concomitant]
  13. VITAMIN E [Concomitant]

REACTIONS (1)
  - FLATULENCE [None]
